FAERS Safety Report 12631756 (Version 2)
Quarter: 2016Q3

REPORT INFORMATION
  Report Type: Spontaneous
  Country: US (occurrence: US)
  Receive Date: 20160808
  Receipt Date: 20160808
  Transmission Date: 20161109
  Serious: No
  Sender: FDA-Public Use
  Company Number: US-BEH-2016060902

PATIENT
  Sex: Female
  Weight: 98 kg

DRUGS (34)
  1. COQ [Concomitant]
  2. CRANBERRY. [Concomitant]
     Active Substance: CRANBERRY
  3. PRAVASTATIN. [Concomitant]
     Active Substance: PRAVASTATIN
  4. NEURONTIN [Concomitant]
     Active Substance: GABAPENTIN
  5. NEXIUM [Concomitant]
     Active Substance: ESOMEPRAZOLE MAGNESIUM
  6. ESTRACE [Concomitant]
     Active Substance: ESTRADIOL
  7. XOPENEX [Concomitant]
     Active Substance: LEVALBUTEROL HYDROCHLORIDE
  8. HIZENTRA [Suspect]
     Active Substance: HUMAN IMMUNOGLOBULIN G
     Indication: IMMUNODEFICIENCY COMMON VARIABLE
     Route: 058
     Dates: start: 20130422
  9. PREDNISONE. [Concomitant]
     Active Substance: PREDNISONE
  10. ZYRTEC [Concomitant]
     Active Substance: CETIRIZINE HYDROCHLORIDE
  11. DYMISTA [Concomitant]
     Active Substance: AZELASTINE HYDROCHLORIDE\FLUTICASONE PROPIONATE
  12. LOTREL [Concomitant]
     Active Substance: AMLODIPINE BESYLATE\BENAZEPRIL HYDROCHLORIDE
  13. VITAMIN E [Concomitant]
     Active Substance: .ALPHA.-TOCOPHEROL
  14. CHERATUSSIN [Concomitant]
     Active Substance: AMMONIUM CHLORIDE\DEXTROMETHORPHAN\SODIUM CITRATE
  15. SINGULAIR [Concomitant]
     Active Substance: MONTELUKAST SODIUM
  16. MULTIVITAMIN [Concomitant]
     Active Substance: VITAMINS
  17. ALLEGRA [Concomitant]
     Active Substance: FEXOFENADINE HYDROCHLORIDE
  18. POTASSIUM [Concomitant]
     Active Substance: POTASSIUM
  19. FISH OIL [Concomitant]
     Active Substance: FISH OIL
  20. VITAMIN B [Concomitant]
     Active Substance: VITAMIN B
  21. STOOL SOFTENER [Concomitant]
     Active Substance: DOCUSATE CALCIUM
  22. DIPHENHYDRAMINE. [Concomitant]
     Active Substance: DIPHENHYDRAMINE
  23. EPIPEN [Concomitant]
     Active Substance: EPINEPHRINE
  24. PENICILLIN [Concomitant]
     Active Substance: PENICILLIN
  25. DULERA [Concomitant]
     Active Substance: FORMOTEROL FUMARATE DIHYDRATE\MOMETASONE FUROATE
  26. ACETAMINOPHEN. [Concomitant]
     Active Substance: ACETAMINOPHEN
  27. HYDROCODONE [Concomitant]
     Active Substance: HYDROCODONE
  28. HYDROCHLORTHIAZIDE [Concomitant]
     Active Substance: HYDROCHLOROTHIAZIDE
  29. MOBIC [Concomitant]
     Active Substance: MELOXICAM
  30. PROMETHAZINE [Concomitant]
     Active Substance: PROMETHAZINE\PROMETHAZINE HYDROCHLORIDE
  31. CORTISONE [Concomitant]
     Active Substance: CORTISONE\HYDROCORTISONE
  32. TEKURNA [Concomitant]
  33. DIAZEPAM. [Concomitant]
     Active Substance: DIAZEPAM
  34. VENTOLIN [Concomitant]
     Active Substance: ALBUTEROL SULFATE

REACTIONS (1)
  - Viral infection [Unknown]
